FAERS Safety Report 7388878-3 (Version None)
Quarter: 2011Q2

REPORT INFORMATION
  Report Type: 
  Country: None (occurrence: None)
  Receive Date: 20110401
  Receipt Date: 20101006
  Transmission Date: 20111010
  Serious: Yes (Hospitalization, Other)
  Sender: FDA-Public Use
  Company Number: US-BAYER-201015557NA

PATIENT
  Sex: Female
  Weight: 65.76 kg

DRUGS (6)
  1. YASMIN [Suspect]
     Indication: ACNE
     Route: 048
     Dates: start: 20070301
  2. NSAID'S [Concomitant]
  3. YAZ [Suspect]
     Indication: PREMENSTRUAL SYNDROME
  4. YASMIN [Suspect]
     Indication: PREMENSTRUAL SYNDROME
  5. ALEVE [Concomitant]
  6. YAZ [Suspect]
     Indication: ACNE
     Route: 048
     Dates: start: 20070301

REACTIONS (11)
  - GALLBLADDER DISORDER [None]
  - ABDOMINAL PAIN UPPER [None]
  - CHOLELITHIASIS [None]
  - CHEST PAIN [None]
  - PROCEDURAL PAIN [None]
  - GASTROOESOPHAGEAL REFLUX DISEASE [None]
  - BACK PAIN [None]
  - VOMITING [None]
  - CHOLECYSTITIS ACUTE [None]
  - NAUSEA [None]
  - ANXIETY [None]
